FAERS Safety Report 4336256-3 (Version None)
Quarter: 2004Q2

REPORT INFORMATION
  Report Type: 
  Country: None (occurrence: None)
  Receive Date: 20040407
  Receipt Date: 20040323
  Transmission Date: 20050107
  Serious: Yes (Hospitalization)
  Sender: FDA-Public Use
  Company Number: GBT040101137

PATIENT
  Age: 66 Year
  Sex: Male
  Weight: 86 kg

DRUGS (10)
  1. PEMETREXED [Suspect]
     Indication: MESOTHELIOMA
     Dosage: 950 MG/1 OTHER
     Dates: start: 20031113, end: 20031209
  2. CARBOPLATIN [Suspect]
     Indication: MESOTHELIOMA
     Dosage: 555 MG/L OTHER
     Dates: start: 20031113, end: 20031209
  3. VITAMIN B-12 [Concomitant]
  4. .... [Concomitant]
  5. DICLOFENAC SODIUM [Concomitant]
  6. GABAPENTIN [Concomitant]
  7. AMITRIPTYLINE HCL [Concomitant]
  8. AMLODIPINE [Concomitant]
  9. LANSOPRAZOLE [Concomitant]
  10. MAST (MORPHINE SULFATE) [Concomitant]

REACTIONS (14)
  - CONFUSIONAL STATE [None]
  - CSF PROTEIN INCREASED [None]
  - CSF WHITE BLOOD CELL COUNT POSITIVE [None]
  - HAEMOGLOBIN DECREASED [None]
  - LYMPHOCYTE COUNT DECREASED [None]
  - MARKEDLY REDUCED DIETARY INTAKE [None]
  - MENINGITIS BACTERIAL [None]
  - MUCOSAL INFLAMMATION [None]
  - NEUTROPENIA [None]
  - PAIN [None]
  - PLATELET COUNT DECREASED [None]
  - RED BLOOD CELL COUNT DECREASED [None]
  - RED BLOOD CELLS CSF POSITIVE [None]
  - WHITE BLOOD CELL COUNT DECREASED [None]
